FAERS Safety Report 23835581 (Version 1)
Quarter: 2024Q2

REPORT INFORMATION
  Report Type: Spontaneous
  Country: FR (occurrence: FR)
  Receive Date: 20240509
  Receipt Date: 20240509
  Transmission Date: 20240716
  Serious: Yes (Other)
  Sender: FDA-Public Use
  Company Number: FR-MYLANLABS-2023M1083820

PATIENT
  Sex: Male

DRUGS (2)
  1. FENOFIBRATE [Suspect]
     Active Substance: FENOFIBRATE
     Indication: Hypertriglyceridaemia
     Dosage: UNK
     Route: 065
  2. FENOFIBRATE [Suspect]
     Active Substance: FENOFIBRATE
     Indication: Hypercholesterolaemia

REACTIONS (7)
  - Arteriosclerosis [Unknown]
  - General physical condition abnormal [Unknown]
  - Vertigo [Unknown]
  - Job dissatisfaction [Unknown]
  - Malaise [Unknown]
  - Fatigue [Unknown]
  - High density lipoprotein decreased [Unknown]
